FAERS Safety Report 4341752-9 (Version None)
Quarter: 2004Q2

REPORT INFORMATION
  Report Type: 
  Country: None (occurrence: None)
  Receive Date: 20040415
  Receipt Date: 20040406
  Transmission Date: 20050107
  Serious: Yes (Disabling)
  Sender: FDA-Public Use
  Company Number: JP-JNJFOC-20040401130

PATIENT
  Age: 68 Year
  Sex: Female

DRUGS (3)
  1. RISPERDAL [Suspect]
     Indication: DEMENTIA
     Dosage: 1 MG, 1 IN 1 DAY, ORAL
     Route: 048
  2. DONEPEZIL HCL [Concomitant]
  3. OLANZAPINE [Concomitant]

REACTIONS (3)
  - CREUTZFELDT-JAKOB DISEASE [None]
  - MENINGIOMA [None]
  - SEDATION [None]
